FAERS Safety Report 15207999 (Version 2)
Quarter: 2018Q3

REPORT INFORMATION
  Report Type: Spontaneous
  Country: US (occurrence: US)
  Receive Date: 20180727
  Receipt Date: 20180909
  Transmission Date: 20181010
  Serious: No
  Sender: FDA-Public Use
  Company Number: US-JNJFOC-20180722272

PATIENT
  Age: 26 Year
  Sex: Male
  Weight: 55.79 kg

DRUGS (1)
  1. YONDELIS [Suspect]
     Active Substance: TRABECTEDIN
     Indication: CHEMOTHERAPY
     Route: 042
     Dates: start: 20180712, end: 20180713

REACTIONS (2)
  - Device malfunction [Recovered/Resolved]
  - Underdose [Recovered/Resolved]

NARRATIVE: CASE EVENT DATE: 20180712
